FAERS Safety Report 7024229-1 (Version None)
Quarter: 2010Q4

REPORT INFORMATION
  Report Type: 
  Country: None (occurrence: None)
  Receive Date: 20101001
  Receipt Date: 20100928
  Transmission Date: 20110411
  Serious: Yes (Hospitalization)
  Sender: FDA-Public Use
  Company Number: FR-ROCHE-730000

PATIENT
  Sex: Male

DRUGS (6)
  1. ROCEPHIN [Suspect]
     Route: 042
     Dates: start: 20100909, end: 20100915
  2. VALIUM [Concomitant]
     Indication: DELIRIUM TREMENS
     Route: 042
     Dates: start: 20100909, end: 20100915
  3. LOVENOX [Concomitant]
     Indication: PROPHYLAXIS
     Route: 058
     Dates: start: 20100909
  4. ROVAMYCINE [Concomitant]
     Dates: start: 20100909, end: 20100909
  5. NEXIUM [Concomitant]
     Indication: PROPHYLAXIS
     Dates: end: 20100911
  6. NOREPINEPHRINE BITARTRATE [Concomitant]
     Indication: SEPTIC SHOCK
     Dates: end: 20100913

REACTIONS (1)
  - PANCREATITIS [None]
